FAERS Safety Report 4522255-5 (Version None)
Quarter: 2004Q4

REPORT INFORMATION
  Report Type: 
  Country: None (occurrence: None)
  Receive Date: 20041207
  Receipt Date: 20041124
  Transmission Date: 20050328
  Serious: Yes (Hospitalization)
  Sender: FDA-Public Use
  Company Number: 2004100390

PATIENT
  Sex: Male

DRUGS (3)
  1. ARTHROTEC [Suspect]
     Indication: ILL-DEFINED DISORDER
     Dosage: ORAL
     Route: 048
  2. ACETAMINOPHEN [Concomitant]
  3. FERROUS SULFATE TAB [Concomitant]

REACTIONS (8)
  - ARTHRITIS [None]
  - BLOOD PRESSURE ABNORMAL [None]
  - DIARRHOEA [None]
  - FAECAL INCONTINENCE [None]
  - FALL [None]
  - HAEMORRHAGE [None]
  - JOINT SWELLING [None]
  - POLLAKIURIA [None]
